FAERS Safety Report 5738833-1 (Version None)
Quarter: 2008Q2

REPORT INFORMATION
  Report Type: 
  Country: None (occurrence: None)
  Receive Date: 20080515
  Receipt Date: 20080421
  Transmission Date: 20081010
  Serious: No
  Sender: FDA-Public Use
  Company Number: A0719403A

PATIENT
  Age: 61 Year
  Sex: Female
  Weight: 65.5 kg

DRUGS (8)
  1. VERAMYST [Suspect]
     Dosage: 2SPR PER DAY
     Route: 045
     Dates: start: 20080306
  2. ALLEGRA D 24 HOUR [Suspect]
     Indication: DRUG USE FOR UNKNOWN INDICATION
  3. TOPROL-XL [Concomitant]
  4. MUCINEX [Concomitant]
  5. ALLERGY INJECTION (UNSPECIFIED) [Concomitant]
  6. PRILOSEC [Concomitant]
  7. HORMONE REPLACEMENT [Concomitant]
  8. LEVAQUIN [Concomitant]

REACTIONS (1)
  - TACHYCARDIA [None]
